FAERS Safety Report 23251378 (Version 1)
Quarter: 2023Q4

REPORT INFORMATION
  Report Type: Spontaneous
  Country: US (occurrence: US)
  Receive Date: 20231201
  Receipt Date: 20231201
  Transmission Date: 20240110
  Serious: No
  Sender: FDA-Public Use
  Company Number: US-BAYER-2023A172606

PATIENT

DRUGS (1)
  1. GADAVIST [Suspect]
     Active Substance: GADOBUTROL
     Indication: Magnetic resonance imaging
     Dosage: UNK UNK, ONCE
     Route: 042

REACTIONS (5)
  - Urticaria [None]
  - Pruritus [None]
  - Cough [None]
  - Sneezing [None]
  - Salivary hypersecretion [None]

NARRATIVE: CASE EVENT DATE: 20231024
